FAERS Safety Report 6295943-0 (Version None)
Quarter: 2009Q3

REPORT INFORMATION
  Report Type: 
  Country: None (occurrence: None)
  Receive Date: 20090803
  Receipt Date: 20090803
  Transmission Date: 20100115
  Serious: Yes (Life-Threatening, Other)
  Sender: FDA-Public Use
  Company Number: None

PATIENT
  Age: 21 Year
  Sex: Female
  Weight: 54.4316 kg

DRUGS (2)
  1. SINGULAIR [Suspect]
     Indication: ASTHMA
     Dosage: 10MG DAILY PO
     Route: 048
     Dates: start: 20000501, end: 20090601
  2. SINGULAIR [Suspect]
     Indication: MULTIPLE ALLERGIES
     Dosage: 10MG DAILY PO
     Route: 048
     Dates: start: 20000501, end: 20090601

REACTIONS (20)
  - ANGER [None]
  - ANXIETY [None]
  - BLOOD PRESSURE ABNORMAL [None]
  - DEPRESSION [None]
  - DRUG TOLERANCE DECREASED [None]
  - DYSPNOEA [None]
  - FATIGUE [None]
  - HALLUCINATION [None]
  - HEADACHE [None]
  - HOMICIDAL IDEATION [None]
  - NAUSEA [None]
  - PALPITATIONS [None]
  - PANIC ATTACK [None]
  - SCOLIOSIS [None]
  - SCREAMING [None]
  - SLEEP TERROR [None]
  - STRESS [None]
  - SUICIDAL IDEATION [None]
  - SYNCOPE [None]
  - VOMITING [None]
